FAERS Safety Report 7232311-9 (Version None)
Quarter: 2011Q1

REPORT INFORMATION
  Report Type: 
  Country: None (occurrence: None)
  Receive Date: 20110119
  Receipt Date: 20110114
  Transmission Date: 20110831
  Serious: Yes (Hospitalization)
  Sender: FDA-Public Use
  Company Number: DE-TEVA-263435GER

PATIENT
  Sex: Male

DRUGS (11)
  1. ABIRATERONE ACETATE OR PLACEBO [Suspect]
     Indication: PROSTATE CANCER METASTATIC
     Route: 048
     Dates: start: 20100505, end: 20101208
  2. ZOLEDRONIC ACID [Concomitant]
     Indication: BONE DISORDER
     Dates: start: 20081222
  3. METAMIZOLE SODIUM [Concomitant]
     Indication: CANCER PAIN
     Dosage: 40 DOSES, 1 IN 1 AS NECESSARY
     Route: 048
     Dates: start: 20100811
  4. PANTOPRAZOLE [Concomitant]
     Indication: GASTRODUODENAL ULCER
     Route: 048
     Dates: start: 20101001
  5. PREDNISOLONE [Suspect]
     Route: 048
     Dates: start: 20081118
  6. ZOLEDRONIC ACID [Concomitant]
     Dates: start: 20100421
  7. LEUPROLIDE ACETATE [Concomitant]
     Indication: ANTIOESTROGEN THERAPY
     Dates: start: 20091222
  8. PREDNISOLONE [Suspect]
     Indication: PROSTATE CANCER METASTATIC
     Route: 048
     Dates: start: 20100505
  9. ABIRATERONE ACETATE OR PLACEBO [Suspect]
     Route: 048
     Dates: start: 20081219
  10. LEUPROLIDE ACETATE [Concomitant]
     Dates: start: 20100421
  11. DICLOFENAC SODIUM [Concomitant]
     Indication: CANCER PAIN
     Route: 048
     Dates: start: 20101001

REACTIONS (1)
  - ANAEMIA [None]
